FAERS Safety Report 21089097 (Version 1)
Quarter: 2022Q3

REPORT INFORMATION
  Report Type: Spontaneous
  Country: US (occurrence: US)
  Receive Date: 20220715
  Receipt Date: 20220715
  Transmission Date: 20221026
  Serious: No
  Sender: FDA-Public Use
  Company Number: US-BIOVITRUM-2022US08532

PATIENT
  Sex: Female
  Weight: 6 kg

DRUGS (8)
  1. SYNAGIS [Suspect]
     Active Substance: PALIVIZUMAB
     Indication: Hypoplastic left heart syndrome
     Dates: start: 202112
  2. LASIX [Concomitant]
     Active Substance: FUROSEMIDE
     Dosage: TABLET
  3. PEPCID [Concomitant]
     Active Substance: FAMOTIDINE
     Dosage: TABLET
  4. ENALAPRIL MALEATE [Concomitant]
     Active Substance: ENALAPRIL MALEATE
     Dosage: 1MG/ML SOLUTION
  5. DIGOXIN [Concomitant]
     Active Substance: DIGOXIN
     Dosage: SOLUTION
  6. ASPIRIN [Concomitant]
     Active Substance: ASPIRIN
     Dosage: TAB CHEW
  7. CHILDRENS TYLENOL [Concomitant]
     Active Substance: ACETAMINOPHEN
  8. SYNAGIS [Suspect]
     Active Substance: PALIVIZUMAB
     Indication: Congenital aortic valve stenosis

REACTIONS (1)
  - Fatigue [Unknown]
